FAERS Safety Report 11514362 (Version 1)
Quarter: 2015Q3

REPORT INFORMATION
  Report Type: Spontaneous
  Country: FR (occurrence: FR)
  Receive Date: 20150916
  Receipt Date: 20150916
  Transmission Date: 20151125
  Serious: Yes (Life-Threatening, Hospitalization)
  Sender: FDA-Public Use
  Company Number: FR-TEVA-592005ISR

PATIENT
  Age: 45 Year
  Sex: Female

DRUGS (7)
  1. ZAMUDOL [Concomitant]
     Active Substance: TRAMADOL HYDROCHLORIDE
  2. SKENAN [Concomitant]
     Active Substance: MORPHINE SULFATE
  3. PANTOPRAZOLE [Concomitant]
     Active Substance: PANTOPRAZOLE SODIUM
  4. LYSANXIA [Concomitant]
     Active Substance: PRAZEPAM
  5. STILNOX [Concomitant]
     Active Substance: ZOLPIDEM TARTRATE
  6. LEELOO 0.1 MG/0.02 MG [Suspect]
     Active Substance: ETHINYL ESTRADIOL\LEVONORGESTREL
     Indication: ORAL CONTRACEPTION
     Dosage: 0.1 MG ETHINYLESTRADIOL+ 0.02 MG W/LEVONORGESTREL
     Route: 048
  7. DIFFU K [Concomitant]
     Active Substance: POTASSIUM CHLORIDE

REACTIONS (5)
  - Shock symptom [Recovered/Resolved]
  - Cor pulmonale acute [Recovered/Resolved]
  - Pulmonary embolism [Recovered/Resolved]
  - Dyspnoea [Recovered/Resolved]
  - Intracardiac thrombus [Recovered/Resolved]

NARRATIVE: CASE EVENT DATE: 20150815
